FAERS Safety Report 16751009 (Version 4)
Quarter: 2025Q3

REPORT INFORMATION
  Report Type: Spontaneous
  Country: EU (occurrence: EU)
  Receive Date: 20190828
  Receipt Date: 20250824
  Transmission Date: 20251020
  Serious: Yes (Death, Life-Threatening, Hospitalization, Other)
  Sender: AUROBINDO
  Company Number: EU-MYLANLABS-2019M1080220

PATIENT
  Age: 37 Year
  Sex: Male
  Weight: 91 kg

DRUGS (8)
  1. PAROXETINE [Suspect]
     Active Substance: PAROXETINE
     Indication: Product used for unknown indication
     Route: 048
  2. ALPRAZOLAM [Suspect]
     Active Substance: ALPRAZOLAM
     Indication: Product used for unknown indication
     Route: 048
  3. DESLORATADINE [Suspect]
     Active Substance: DESLORATADINE
     Indication: Product used for unknown indication
     Route: 048
  4. IBUPROFEN [Suspect]
     Active Substance: IBUPROFEN
     Indication: Product used for unknown indication
     Route: 048
  5. PREDNISONE [Suspect]
     Active Substance: PREDNISONE
     Indication: Product used for unknown indication
     Route: 048
  6. TRIMEBUTINE [Suspect]
     Active Substance: TRIMEBUTINE
     Indication: Product used for unknown indication
     Route: 048
  7. COLCHICINE [Suspect]
     Active Substance: COLCHICINE
     Indication: Product used for unknown indication
     Route: 048
  8. LEVOTHYROXINE [Suspect]
     Active Substance: LEVOTHYROXINE
     Indication: Product used for unknown indication
     Route: 048

REACTIONS (15)
  - Acute kidney injury [Fatal]
  - Hepatic failure [Fatal]
  - Intestinal ischaemia [Fatal]
  - Multiple organ dysfunction syndrome [Fatal]
  - Disseminated intravascular coagulation [Fatal]
  - Toxicity to various agents [Not Recovered/Not Resolved]
  - Shock [Unknown]
  - Vomiting [Unknown]
  - Abdominal pain [Unknown]
  - Diarrhoea [Unknown]
  - Hyperthermia [Unknown]
  - Muscle spasms [Unknown]
  - Leukocytosis [Unknown]
  - Hyperleukocytosis [Unknown]
  - Intentional overdose [Not Recovered/Not Resolved]
